FAERS Safety Report 7782627-2 (Version None)
Quarter: 2011Q3

REPORT INFORMATION
  Report Type: 
  Country: None (occurrence: None)
  Receive Date: 20110926
  Receipt Date: 20110909
  Transmission Date: 20111222
  Serious: Yes (Disabling, Other)
  Sender: FDA-Public Use
  Company Number: 2011AP002019

PATIENT
  Sex: Female

DRUGS (4)
  1. ALENDRONATE SODIUM [Suspect]
     Indication: OSTEOPOROSIS
     Dates: start: 20081101, end: 20091201
  2. ALENDRONATE SODIUM [Suspect]
     Indication: OSTEOPENIA
     Dates: start: 20081101, end: 20091201
  3. FOSAMAX [Suspect]
     Indication: OSTEOPOROSIS
     Dates: start: 20010401
  4. FOSAMAX [Suspect]
     Indication: OSTEOPENIA
     Dates: start: 20010401

REACTIONS (7)
  - MENTAL DISORDER [None]
  - STRESS FRACTURE [None]
  - PAIN [None]
  - FEMUR FRACTURE [None]
  - BONE DISORDER [None]
  - LOW TURNOVER OSTEOPATHY [None]
  - MULTIPLE INJURIES [None]
